FAERS Safety Report 4805269-7 (Version None)
Quarter: 2005Q4

REPORT INFORMATION
  Report Type: 
  Country: None (occurrence: None)
  Receive Date: 20051018
  Receipt Date: 20051007
  Transmission Date: 20060501
  Serious: Yes (Disabling)
  Sender: FDA-Public Use
  Company Number: HQWYE944910OCT05

PATIENT
  Age: 23 Year
  Sex: Female

DRUGS (1)
  1. EFFEXOR XR [Suspect]
     Dosage: 225 MG 1X PER 1 DAY
     Route: 048

REACTIONS (3)
  - DRUG INTERACTION [None]
  - MYOCLONUS [None]
  - WEIGHT INCREASED [None]
